FAERS Safety Report 18663863 (Version 2)
Quarter: 2021Q1

REPORT INFORMATION
  Report Type: Spontaneous
  Country: JP (occurrence: JP)
  Receive Date: 20201224
  Receipt Date: 20210107
  Transmission Date: 20210419
  Serious: Yes (Death, Other)
  Sender: FDA-Public Use
  Company Number: NVSJ2020JP014214

PATIENT
  Age: 94 Year
  Sex: Female

DRUGS (1)
  1. ENTRESTO [Suspect]
     Active Substance: SACUBITRIL\VALSARTAN
     Indication: CARDIAC FAILURE CHRONIC
     Dosage: 50 MG
     Route: 048
     Dates: start: 20201207, end: 20201213

REACTIONS (12)
  - Ileus [Unknown]
  - Urinary tract infection [Unknown]
  - White blood cell count increased [Unknown]
  - Intestinal perforation [Fatal]
  - Thrombosis mesenteric vessel [Unknown]
  - Asthenia [Unknown]
  - N-terminal prohormone brain natriuretic peptide increased [Unknown]
  - C-reactive protein increased [Unknown]
  - Intestinal dilatation [Unknown]
  - Abdominal pain lower [Recovered/Resolved]
  - Urinary retention [Unknown]
  - Mesenteric arterial occlusion [Unknown]

NARRATIVE: CASE EVENT DATE: 20201211
